FAERS Safety Report 7111227-2 (Version None)
Quarter: 2010Q4

REPORT INFORMATION
  Report Type: 
  Country: None (occurrence: None)
  Receive Date: 20101118
  Receipt Date: 20100304
  Transmission Date: 20110411
  Serious: No
  Sender: FDA-Public Use
  Company Number: US-PFIZER INC-2010008141

PATIENT
  Sex: Female
  Weight: 49.887 kg

DRUGS (3)
  1. ZYVOX [Suspect]
     Indication: OSTEOMYELITIS
     Dosage: 600 MG, 2X/DAY
     Route: 048
     Dates: start: 20091231, end: 20100120
  2. IBUPROFEN [Concomitant]
     Indication: PAIN
     Dosage: 100 MG, UNK
  3. LORTAB [Concomitant]
     Indication: PAIN
     Dosage: UNK

REACTIONS (4)
  - DIARRHOEA [None]
  - FATIGUE [None]
  - MALAISE [None]
  - NAUSEA [None]
